FAERS Safety Report 17027695 (Version 1)
Quarter: 2019Q4

REPORT INFORMATION
  Report Type: Spontaneous
  Country: JP (occurrence: JP)
  Receive Date: 20191113
  Receipt Date: 20191113
  Transmission Date: 20200122
  Serious: Yes (Other)
  Sender: FDA-Public Use
  Company Number: JP-JNJFOC-20190525279

PATIENT
  Age: 37 Year
  Sex: Female
  Weight: 48 kg

DRUGS (10)
  1. NORVIR [Concomitant]
     Active Substance: RITONAVIR
     Indication: HIV INFECTION
     Route: 048
     Dates: start: 20160420
  2. UTEMERIN [Suspect]
     Active Substance: RITODRINE
     Indication: PRODUCT USED FOR UNKNOWN INDICATION
     Route: 048
     Dates: start: 20180411
  3. FERROGRADUMET [Suspect]
     Active Substance: FERROUS SULFATE
     Indication: ANAEMIA
     Route: 048
     Dates: start: 20180425, end: 20180523
  4. PREZISTANAIVE [Suspect]
     Active Substance: DARUNAVIR
     Indication: HIV INFECTION
     Route: 048
     Dates: start: 20160420
  5. ZITHROMAC [Suspect]
     Active Substance: AZITHROMYCIN DIHYDRATE
     Indication: CHLAMYDIAL CERVICITIS
     Route: 048
     Dates: start: 20180509, end: 20180509
  6. TRUVADA [Concomitant]
     Active Substance: EMTRICITABINE\TENOFOVIR DISOPROXIL FUMARATE
     Route: 048
     Dates: start: 20160601, end: 20180912
  7. PREZISTANAIVE [Suspect]
     Active Substance: DARUNAVIR
     Route: 048
     Dates: start: 20160601, end: 20180912
  8. NORVIR [Concomitant]
     Active Substance: RITONAVIR
     Route: 048
     Dates: start: 20160601, end: 20180912
  9. TRUVADA [Concomitant]
     Active Substance: EMTRICITABINE\TENOFOVIR DISOPROXIL FUMARATE
     Indication: HIV INFECTION
     Route: 048
     Dates: start: 20160420
  10. XYZAL [Concomitant]
     Active Substance: LEVOCETIRIZINE DIHYDROCHLORIDE
     Indication: DERMATITIS ALLERGIC
     Route: 065
     Dates: start: 20160706

REACTIONS (3)
  - Exposure during pregnancy [Recovered/Resolved]
  - Anaemia [Recovered/Resolved]
  - Chlamydial cervicitis [Recovered/Resolved]

NARRATIVE: CASE EVENT DATE: 20171115
